FAERS Safety Report 21960729 (Version 1)
Quarter: 2023Q1

REPORT INFORMATION
  Report Type: Spontaneous
  Country: US (occurrence: US)
  Receive Date: 20230207
  Receipt Date: 20230207
  Transmission Date: 20230417
  Serious: Yes (Death, Other)
  Sender: FDA-Public Use
  Company Number: US-SANOFI-01460621

PATIENT
  Age: 19 Year
  Sex: Male
  Weight: 25.4 kg

DRUGS (4)
  1. ALDURAZYME [Suspect]
     Active Substance: LARONIDASE
  2. PULMICORT TURBUHALER [Concomitant]
     Active Substance: BUDESONIDE
     Indication: Bronchial hyperreactivity
  3. ALBUTEROL [Concomitant]
     Active Substance: ALBUTEROL
     Indication: Bronchial hyperreactivity
  4. MIRALAX [Concomitant]
     Active Substance: POLYETHYLENE GLYCOL 3350
     Indication: Constipation

REACTIONS (1)
  - Cardiopulmonary failure [Fatal]
